FAERS Safety Report 8457721-3 (Version None)
Quarter: 2012Q2

REPORT INFORMATION
  Report Type: 
  Country: None (occurrence: None)
  Receive Date: 20120618
  Receipt Date: 20120618
  Transmission Date: 20120825
  Serious: Yes (Hospitalization)
  Sender: FDA-Public Use
  Company Number: None

PATIENT
  Age: 66 Year
  Sex: Female
  Weight: 89.8122 kg

DRUGS (2)
  1. MACROBID [Suspect]
     Indication: URINARY TRACT INFECTION
     Dosage: ONE CAPSULE TWICE A DAY PO
     Route: 048
     Dates: start: 20120417, end: 20120422
  2. MACROBID [Suspect]
     Indication: URINARY TRACT INFECTION
     Dosage: ONE CAPSULE TWICE A DAY PO
     Route: 048
     Dates: start: 20120615, end: 20120615

REACTIONS (8)
  - CHILLS [None]
  - MALAISE [None]
  - PYREXIA [None]
  - STAPHYLOCOCCAL INFECTION [None]
  - NAUSEA [None]
  - FEELING ABNORMAL [None]
  - DYSPNOEA [None]
  - DIZZINESS [None]
